FAERS Safety Report 20979140 (Version 2)
Quarter: 2022Q2

REPORT INFORMATION
  Report Type: Report from Study
  Country: US (occurrence: US)
  Receive Date: 20220619
  Receipt Date: 20220629
  Transmission Date: 20220720
  Serious: No
  Sender: FDA-Public Use
  Company Number: US-ABBVIE-22K-163-4438608-00

PATIENT
  Age: 60 Year
  Sex: Female
  Weight: 48.578 kg

DRUGS (4)
  1. MAVYRET [Suspect]
     Active Substance: GLECAPREVIR\PIBRENTASVIR
     Indication: Hepatitis C
     Dosage: TAKING MAVYRET WITH FOOD
     Route: 048
     Dates: start: 20220616, end: 20220622
  2. LASIX [Concomitant]
     Active Substance: FUROSEMIDE
     Indication: Ascites
  3. SPIRONOLACTONE [Concomitant]
     Active Substance: SPIRONOLACTONE
     Indication: Ascites
  4. IRON [Concomitant]
     Active Substance: IRON
     Indication: Supplementation therapy

REACTIONS (8)
  - Unevaluable event [Recovered/Resolved]
  - Hallucinations, mixed [Recovered/Resolved]
  - Dry mouth [Recovered/Resolved]
  - Mouth swelling [Recovered/Resolved]
  - Asthenia [Recovered/Resolved]
  - Blood sodium decreased [Recovered/Resolved]
  - Unevaluable event [Recovered/Resolved]
  - Diarrhoea [Recovering/Resolving]

NARRATIVE: CASE EVENT DATE: 20220618
